FAERS Safety Report 14998325 (Version 1)
Quarter: 2018Q2

REPORT INFORMATION
  Report Type: Spontaneous
  Country: US (occurrence: US)
  Receive Date: 20180520
  Receipt Date: 20180520
  Transmission Date: 20180711
  Serious: Yes (Disabling)
  Sender: FDA-Public Use
  Company Number: None

PATIENT
  Age: 30 Year
  Sex: Female
  Weight: 61.69 kg

DRUGS (1)
  1. NEXPLANON [Suspect]
     Active Substance: ETONOGESTREL
     Dates: start: 20171017, end: 20180328

REACTIONS (6)
  - Breast pain [None]
  - Genital contusion [None]
  - Sexual dysfunction [None]
  - Breast cyst [None]
  - Vulvovaginal disorder [None]
  - Dyspareunia [None]

NARRATIVE: CASE EVENT DATE: 20180117
